FAERS Safety Report 12319666 (Version 1)
Quarter: 2016Q2

REPORT INFORMATION
  Report Type: Spontaneous
  Country: GR (occurrence: GR)
  Receive Date: 20160429
  Receipt Date: 20160429
  Transmission Date: 20160815
  Serious: Yes (Hospitalization)
  Sender: FDA-Public Use
  Company Number: GR-VALIDUS PHARMACEUTICALS LLC-GR-2016VAL001333

PATIENT
  Age: 87 Year
  Sex: Female

DRUGS (2)
  1. LOSARTAN                           /01121602/ [Concomitant]
     Active Substance: LOSARTAN
     Indication: PRODUCT USED FOR UNKNOWN INDICATION
  2. FUROSEMIDE. [Suspect]
     Active Substance: FUROSEMIDE
     Indication: PRODUCT USED FOR UNKNOWN INDICATION
     Dosage: 20 MG, QD

REACTIONS (19)
  - Blood creatinine increased [Recovered/Resolved]
  - Sluggishness [Recovering/Resolving]
  - C-reactive protein increased [Recovered/Resolved]
  - Red blood cell sedimentation rate increased [Recovered/Resolved]
  - Anion gap increased [Unknown]
  - Skin turgor decreased [Recovering/Resolving]
  - Blood potassium increased [Recovered/Resolved]
  - Hyperosmolar state [Recovering/Resolving]
  - Somnolence [Recovering/Resolving]
  - Metabolic acidosis [Unknown]
  - Dehydration [Recovering/Resolving]
  - Hypotension [Recovering/Resolving]
  - Acute kidney injury [Recovered/Resolved]
  - Blood chloride increased [Recovered/Resolved]
  - Blood uric acid increased [Recovered/Resolved]
  - Hypoalbuminaemia [Recovered/Resolved]
  - Hypernatraemia [Recovered/Resolved]
  - Blood urea increased [Recovered/Resolved]
  - Mucosal dryness [Recovering/Resolving]
